FAERS Safety Report 12904520 (Version 2)
Quarter: 2018Q1

REPORT INFORMATION
  Report Type: Report from Study
  Country: US (occurrence: US)
  Receive Date: 20161102
  Receipt Date: 20180131
  Transmission Date: 20180508
  Serious: Yes (Other)
  Sender: FDA-Public Use
  Company Number: US-UCBSA-2016041440

PATIENT

DRUGS (1)
  1. CERTOLIZUMAB PEGOL [Suspect]
     Active Substance: CERTOLIZUMAB PEGOL
     Indication: RHEUMATOID ARTHRITIS
     Dosage: UNKNOWN DOSE

REACTIONS (22)
  - Sepsis [Unknown]
  - Lung neoplasm malignant [Unknown]
  - Anaphylactic reaction [Unknown]
  - Pneumonia [Unknown]
  - Transient ischaemic attack [Unknown]
  - Cellulitis [Unknown]
  - Infection [Unknown]
  - Cardiovascular disorder [Unknown]
  - Gastroenteritis [Unknown]
  - Breast cancer [Unknown]
  - Neoplasm malignant [Unknown]
  - Skin cancer [Unknown]
  - Staphylococcal infection [Unknown]
  - Diverticulitis [Unknown]
  - Cerebrovascular accident [Unknown]
  - Arthritis infective [Unknown]
  - Sinusitis [Unknown]
  - Upper respiratory tract infection [Unknown]
  - Myocardial infarction [Unknown]
  - Bronchitis [Unknown]
  - Urinary tract infection [Unknown]
  - Bacterial infection [Unknown]
